FAERS Safety Report 16721600 (Version 1)
Quarter: 2019Q3

REPORT INFORMATION
  Report Type: Spontaneous
  Country: US (occurrence: US)
  Receive Date: 20190820
  Receipt Date: 20190820
  Transmission Date: 20191005
  Serious: Yes (Other)
  Sender: FDA-Public Use
  Company Number: US-BAYER-2019-150044

PATIENT
  Sex: Female

DRUGS (1)
  1. SKYLA [Suspect]
     Active Substance: LEVONORGESTREL
     Dosage: 14 MCG/24HR, CONT
     Route: 015
     Dates: start: 201904

REACTIONS (7)
  - Abdominal pain lower [None]
  - Dizziness [None]
  - Device dislocation [None]
  - Metrorrhagia [None]
  - Myalgia [None]
  - Pyrexia [None]
  - Menorrhagia [None]
